FAERS Safety Report 21576779 (Version 2)
Quarter: 2022Q4

REPORT INFORMATION
  Report Type: Spontaneous
  Country: CN (occurrence: CN)
  Receive Date: 20221110
  Receipt Date: 20221214
  Transmission Date: 20230112
  Serious: Yes (Hospitalization)
  Sender: FDA-Public Use
  Company Number: CN-PUMA BIOTECHNOLOGY, INC.-2022-PUM-CN002204

PATIENT

DRUGS (4)
  1. NERLYNX [Suspect]
     Active Substance: NERATINIB
     Indication: Triple positive breast cancer
     Dosage: 240 MG, DAILY
     Route: 048
     Dates: start: 20220320, end: 20221011
  2. NERLYNX [Suspect]
     Active Substance: NERATINIB
     Dosage: 240 MG, DAILY
     Route: 048
     Dates: start: 20221012, end: 20221026
  3. EXEMESTANE [Suspect]
     Active Substance: EXEMESTANE
     Indication: Product used for unknown indication
     Dosage: 1 TABLET, DAILY
     Route: 065
  4. CALCIUM [Concomitant]
     Active Substance: CALCIUM
     Indication: Product used for unknown indication
     Dosage: 1 TABLET EVERY NIGHT
     Route: 065

REACTIONS (13)
  - Vertigo [Recovered/Resolved]
  - Hypertension [Recovering/Resolving]
  - Spinal osteoarthritis [Unknown]
  - Vomiting [Recovered/Resolved]
  - Hypoaesthesia [Recovered/Resolved]
  - Facial pain [Unknown]
  - Epigastric discomfort [Unknown]
  - Feeling cold [Recovered/Resolved]
  - Gait inability [Recovered/Resolved]
  - Diarrhoea [Recovering/Resolving]
  - Feeling hot [Unknown]
  - Hyperhidrosis [Unknown]
  - Dry skin [Unknown]

NARRATIVE: CASE EVENT DATE: 20220101
